FAERS Safety Report 4382165-3 (Version None)
Quarter: 2004Q2

REPORT INFORMATION
  Report Type: 
  Country: None (occurrence: None)
  Receive Date: 20040618
  Receipt Date: 20040618
  Transmission Date: 20050107
  Serious: No
  Sender: FDA-Public Use
  Company Number: None

PATIENT
  Age: 56 Year
  Sex: Male
  Weight: 118.4 kg

DRUGS (16)
  1. OMEPRAZOLE [Suspect]
  2. ALBUTEROL [Concomitant]
  3. HYDROCHLOROTHIAZIDE [Concomitant]
  4. CEPHALEXIN [Concomitant]
  5. FLUNISOLIDE [Concomitant]
  6. OMEPRAZOLE [Concomitant]
  7. LANCET [Concomitant]
  8. FOSINOPRIL NA [Concomitant]
  9. GEMFIBROZIL [Concomitant]
  10. GLYBURIDE [Concomitant]
  11. HYDROCHLOROTHIAZIDE [Concomitant]
  12. LORATADINE [Concomitant]
  13. METFORMIN HCL [Concomitant]
  14. ALBUTEROL/IPRATROP [Concomitant]
  15. ALBUTEROL [Concomitant]
  16. SALMETEROL [Concomitant]

REACTIONS (1)
  - RASH [None]
